FAERS Safety Report 20600978 (Version 1)
Quarter: 2022Q1

REPORT INFORMATION
  Report Type: Spontaneous
  Country: US (occurrence: None)
  Receive Date: 20220316
  Receipt Date: 20220316
  Transmission Date: 20220423
  Serious: No
  Sender: FDA-Public Use
  Company Number: US-ROCHE-2750084

PATIENT
  Age: 64 Year
  Sex: Male

DRUGS (6)
  1. XOLAIR [Suspect]
     Active Substance: OMALIZUMAB
     Indication: Asthma
     Dosage: 1 SYRINGE EVERY 2 WEEKS; ONGOING: YES 75 MG/0.5 ML PFS
     Route: 058
     Dates: start: 20200901
  2. XOLAIR [Suspect]
     Active Substance: OMALIZUMAB
  3. XOLAIR [Suspect]
     Active Substance: OMALIZUMAB
  4. XOLAIR [Suspect]
     Active Substance: OMALIZUMAB
     Dosage: 2 SYRINGES EVERY 2 WEEKS; ONGOING: YES 150 MG/ML PFS
     Route: 058
     Dates: start: 20200901
  5. XOLAIR [Suspect]
     Active Substance: OMALIZUMAB
  6. XOLAIR [Suspect]
     Active Substance: OMALIZUMAB

REACTIONS (1)
  - Depression [Unknown]

NARRATIVE: CASE EVENT DATE: 20200901
